FAERS Safety Report 6381367-4 (Version None)
Quarter: 2009Q3

REPORT INFORMATION
  Report Type: 
  Country: None (occurrence: None)
  Receive Date: 20090929
  Receipt Date: 20090917
  Transmission Date: 20100115
  Serious: Yes (Hospitalization)
  Sender: FDA-Public Use
  Company Number: US-WATSON-2009-07687

PATIENT
  Sex: Male

DRUGS (2)
  1. FENTANYL-50 [Suspect]
     Indication: BACK PAIN
     Dosage: 1 PATCH, Q 3 DAYS, ONLY USED FOR 4 DAYS
     Route: 062
     Dates: start: 20090901, end: 20090901
  2. FENTANYL-50 [Suspect]
     Indication: ARTHRALGIA

REACTIONS (3)
  - OVERDOSE [None]
  - RESPIRATORY DISORDER [None]
  - UNRESPONSIVE TO STIMULI [None]
